FAERS Safety Report 7370892-5 (Version None)
Quarter: 2011Q1

REPORT INFORMATION
  Report Type: 
  Country: None (occurrence: None)
  Receive Date: 20110324
  Receipt Date: 20110315
  Transmission Date: 20110831
  Serious: No
  Sender: FDA-Public Use
  Company Number: US-BIOGENIDEC-2011BI009932

PATIENT
  Age: 55 Year
  Sex: Female

DRUGS (1)
  1. TYSABRI [Suspect]
     Indication: MULTIPLE SCLEROSIS
     Route: 042
     Dates: start: 20090520

REACTIONS (8)
  - INTERVERTEBRAL DISC PROTRUSION [None]
  - APHASIA [None]
  - ASTHENIA [None]
  - VISUAL IMPAIRMENT [None]
  - FALL [None]
  - INTERVERTEBRAL DISC INJURY [None]
  - PAIN IN EXTREMITY [None]
  - BALANCE DISORDER [None]
